FAERS Safety Report 12139403 (Version 2)
Quarter: 2016Q2

REPORT INFORMATION
  Report Type: Spontaneous
  Country: US (occurrence: US)
  Receive Date: 20160303
  Receipt Date: 20160516
  Transmission Date: 20160815
  Serious: No
  Sender: FDA-Public Use
  Company Number: US-009507513-1603USA001398

PATIENT
  Age: 82 Year
  Sex: Male

DRUGS (3)
  1. BELSOMRA [Suspect]
     Active Substance: SUVOREXANT
     Indication: INSOMNIA
     Dosage: ^AS NEEDED, MAYBE EVERY OTHER DAY OR EVERY COUPLE OF DAYS^
     Route: 048
     Dates: start: 201511
  2. FLOMAX [Concomitant]
     Active Substance: TAMSULOSIN HYDROCHLORIDE
  3. BELSOMRA [Suspect]
     Active Substance: SUVOREXANT
     Indication: INSOMNIA
     Dosage: ^AS NEEDED, MAYBE EVERY OTHER DAY OR EVERY COUPLE OF DAYS^
     Route: 048

REACTIONS (3)
  - Food interaction [Unknown]
  - Somnolence [Unknown]
  - Drug effect delayed [Unknown]

NARRATIVE: CASE EVENT DATE: 201511
